FAERS Safety Report 4615309-6 (Version None)
Quarter: 2005Q1

REPORT INFORMATION
  Report Type: 
  Country: None (occurrence: None)
  Receive Date: 20050317
  Receipt Date: 20050211
  Transmission Date: 20050727
  Serious: Yes (Hospitalization)
  Sender: FDA-Public Use
  Company Number: 2005UW00842

PATIENT
  Age: 75 Year
  Sex: Female

DRUGS (11)
  1. IRESSA [Suspect]
     Indication: BREAST CANCER
     Dosage: 250 MG QD PO
     Route: 048
     Dates: start: 20041124
  2. IRESSA [Suspect]
     Indication: BREAST CANCER
     Dates: start: 20050107
  3. TAMOXIFEN CITRATE [Suspect]
     Indication: BREAST CANCER
     Dosage: 20 MG QD PO
     Route: 048
     Dates: start: 20041125
  4. TAMOXIFEN CITRATE [Suspect]
     Indication: BREAST CANCER
     Dates: start: 20050107
  5. STEMETIL ^AVENTIS PHARMA^ [Concomitant]
  6. FOSAMAX [Concomitant]
  7. STATEX [Concomitant]
  8. ZOFRAN [Concomitant]
  9. PERCOCET [Concomitant]
  10. FENTANYL [Concomitant]
  11. SEPTRA DS [Concomitant]

REACTIONS (6)
  - BACK PAIN [None]
  - COMPRESSION FRACTURE [None]
  - DEHYDRATION [None]
  - DIARRHOEA [None]
  - METASTASES TO SPINE [None]
  - SPINAL CORD COMPRESSION [None]
